FAERS Safety Report 4408443-7 (Version None)
Quarter: 2004Q3

REPORT INFORMATION
  Report Type: 
  Country: None (occurrence: None)
  Receive Date: 20040723
  Receipt Date: 20040712
  Transmission Date: 20050211
  Serious: Yes (Other)
  Sender: FDA-Public Use
  Company Number: HQWYE158215JUL04

PATIENT
  Age: 40 Year
  Sex: Female

DRUGS (6)
  1. EFFEXOR [Suspect]
     Indication: DEPRESSIVE SYMPTOM
     Dosage: 37.5 MG 1X PER 1 DAY; UNKNOWN
     Route: 065
  2. EFFEXOR [Suspect]
     Dosage: 150 MG 1X PER 1 DAY; UNKNOWN
     Route: 065
  3. UNSPECIFIED HERBAL PRODUCT (UNSPECIFIED HERBAL PRODUCT, UNSPEC) [Suspect]
     Indication: DECREASED APPETITE
     Dosage: 0.5 G 1X PER 1 DAY; UNKNOWN (SEVERAL WEEKS)
     Route: 065
  4. UNSPECIFIED HERBAL PRODUCT (UNSPECIFIED HERBAL PRODUCT, UNSPEC) [Suspect]
     Indication: FATIGUE
     Dosage: 0.5 G 1X PER 1 DAY; UNKNOWN (SEVERAL WEEKS)
     Route: 065
  5. UNSPECIFIED HERBAL PRODUCT (UNSPECIFIED HERBAL PRODUCT, UNSPEC) [Suspect]
     Indication: INSOMNIA
     Dosage: 0.5 G 1X PER 1 DAY; UNKNOWN (SEVERAL WEEKS)
     Route: 065
  6. UNSPECIFIED HERBAL PRODUCT (UNSPECIFIED HERBAL PRODUCT, UNSPEC) [Suspect]
     Indication: NERVOUSNESS
     Dosage: 0.5 G 1X PER 1 DAY; UNKNOWN (SEVERAL WEEKS)
     Route: 065

REACTIONS (7)
  - ANAPHYLACTOID REACTION [None]
  - ATAXIA [None]
  - BLOOD PRESSURE INCREASED [None]
  - CIRCULATORY COLLAPSE [None]
  - DRUG INTERACTION [None]
  - PULSE ABSENT [None]
  - SEROTONIN SYNDROME [None]
